FAERS Safety Report 7999850-4 (Version None)
Quarter: 2011Q4

REPORT INFORMATION
  Report Type: 
  Country: None (occurrence: None)
  Receive Date: 20111222
  Receipt Date: 20111216
  Transmission Date: 20120403
  Serious: No
  Sender: FDA-Public Use
  Company Number: US-BIOGENIDEC-2011BI035491

PATIENT
  Age: 38 Year
  Sex: Female

DRUGS (4)
  1. TYSABRI [Suspect]
     Indication: MULTIPLE SCLEROSIS
     Route: 042
     Dates: start: 20110805
  2. BENADRYL [Concomitant]
     Indication: PREMEDICATION
  3. AVONEX [Concomitant]
     Indication: MULTIPLE SCLEROSIS
     Route: 030
     Dates: start: 20030201
  4. AVONEX [Concomitant]
     Route: 030
     Dates: start: 19991101

REACTIONS (13)
  - DYSPNOEA [None]
  - COUGH [None]
  - HEADACHE [None]
  - URTICARIA [None]
  - BLOOD PRESSURE INCREASED [None]
  - TREMOR [None]
  - MALAISE [None]
  - FLUSHING [None]
  - ANXIETY [None]
  - PAIN [None]
  - PAIN IN EXTREMITY [None]
  - FOOD ALLERGY [None]
  - RASH [None]
